FAERS Safety Report 9751683 (Version 2)
Quarter: 2013Q4

REPORT INFORMATION
  Report Type: Report from Study
  Country: BR (occurrence: BR)
  Receive Date: 20131213
  Receipt Date: 20131213
  Transmission Date: 20140711
  Serious: Yes (Disabling)
  Sender: FDA-Public Use
  Company Number: BR-ROCHE-1178841

PATIENT
  Sex: Female
  Weight: 63 kg

DRUGS (6)
  1. MABTHERA [Suspect]
     Indication: RHEUMATOID ARTHRITIS
     Route: 065
     Dates: start: 20091101, end: 20111207
  2. PREDNISONE [Concomitant]
     Route: 065
  3. METHOTREXATE [Concomitant]
     Route: 065
  4. REUQUINOL [Concomitant]
  5. VIMOVO [Concomitant]
  6. ARAVA [Concomitant]
     Dosage: FOR 3 TO 4 MONTHS
     Route: 065

REACTIONS (5)
  - Hypoaesthesia [Not Recovered/Not Resolved]
  - Muscular weakness [Not Recovered/Not Resolved]
  - Fall [Unknown]
  - Pain in extremity [Unknown]
  - Pain in extremity [Unknown]
